FAERS Safety Report 18266537 (Version 1)
Quarter: 2020Q3

REPORT INFORMATION
  Report Type: Report from Study
  Country: ES (occurrence: ES)
  Receive Date: 20200915
  Receipt Date: 20200915
  Transmission Date: 20201103
  Serious: Yes (Other)
  Sender: FDA-Public Use
  Company Number: ES-AUROBINDO-AUR-APL-2020-047841

PATIENT
  Age: 7 Month
  Sex: Male

DRUGS (1)
  1. AMOXICILLIN+CLAVULANIC ACID [Suspect]
     Active Substance: AMOXICILLIN\CLAVULANIC ACID
     Indication: MASTOIDITIS
     Dosage: UNK
     Route: 048

REACTIONS (1)
  - Hepatotoxicity [Unknown]
